FAERS Safety Report 16468514 (Version 1)
Quarter: 2019Q2

REPORT INFORMATION
  Report Type: Spontaneous
  Country: FR (occurrence: FR)
  Receive Date: 20190624
  Receipt Date: 20190624
  Transmission Date: 20190711
  Serious: Yes (Hospitalization)
  Sender: FDA-Public Use
  Company Number: FR-PFIZER INC-2019261374

PATIENT
  Age: 53 Year
  Sex: Male

DRUGS (6)
  1. ATORVASTATIN CALCIUM. [Suspect]
     Active Substance: ATORVASTATIN CALCIUM
     Indication: CARDIOVASCULAR EVENT PROPHYLAXIS
  2. PARACETAMOL [Concomitant]
     Active Substance: ACETAMINOPHEN
     Indication: ARTHRALGIA
  3. KYNTHEUM [Suspect]
     Active Substance: BRODALUMAB
     Indication: PSORIASIS
     Dosage: 210 MG, UNK
     Route: 058
     Dates: start: 20181108
  4. SKENAN [Concomitant]
     Active Substance: MORPHINE SULFATE
     Indication: ARTHRALGIA
  5. TRAMADOL. [Concomitant]
     Active Substance: TRAMADOL
     Indication: ARTHRALGIA
  6. EUPHON [ACONITUM NAPELLUS TINCTURE;CODEINE;SISYMBRIUM OFFICINALE SYRUP [Concomitant]
     Indication: COUGH
     Route: 048

REACTIONS (2)
  - Eczema [Recovering/Resolving]
  - Hepatocellular injury [Recovering/Resolving]

NARRATIVE: CASE EVENT DATE: 20190211
